FAERS Safety Report 9855646 (Version 1)
Quarter: 2013Q4

REPORT INFORMATION
  Report Type: Spontaneous
  Country: US (occurrence: None)
  Receive Date: 20131226
  Receipt Date: 20131226
  Transmission Date: 20140711
  Serious: Yes (Other)
  Sender: FDA-Public Use
  Company Number: PHEH2012US025089

PATIENT
  Age: 64 Year
  Sex: Female

DRUGS (4)
  1. VIVELLE DOT (ESTRADIOL) TRANS-THERAPEUTIC-SYSTEM [Suspect]
     Route: 062
  2. LIPITOR (ATORVASTATIN CALCIUM) [Concomitant]
  3. COZAAR (LOSARTAN POTASSIUM) (50 MILLIGRAM, TABLETS) (LOSARTAN POTASSIUM) [Concomitant]
  4. DETROL LA (TOLTERODINE L-TARTRATE) [Concomitant]

REACTIONS (2)
  - Depression [None]
  - Autophobia [None]
